FAERS Safety Report 23752028 (Version 1)
Quarter: 2024Q2

REPORT INFORMATION
  Report Type: Spontaneous
  Country: US (occurrence: US)
  Receive Date: 20240417
  Receipt Date: 20240417
  Transmission Date: 20240716
  Serious: Yes (Hospitalization)
  Sender: FDA-Public Use
  Company Number: US-JNJFOC-20240428737

PATIENT
  Age: 26 Day
  Sex: Female

DRUGS (1)
  1. AVEENO BABY ECZEMA THERAPY SOOTHING BATH TREATMENT [Suspect]
     Active Substance: OATMEAL
     Indication: Eczema
     Dosage: HALF OF IT ONCE A DAY FOR TWO DAYS
     Route: 061
     Dates: start: 20240401, end: 202404

REACTIONS (1)
  - Application site burn [Recovering/Resolving]

NARRATIVE: CASE EVENT DATE: 20240401
